FAERS Safety Report 24982248 (Version 1)
Quarter: 2025Q1

REPORT INFORMATION
  Report Type: Spontaneous
  Country: US (occurrence: None)
  Receive Date: 20250216
  Receipt Date: 20250216
  Transmission Date: 20250409
  Serious: Yes (Disabling)
  Sender: FDA-CTU
  Company Number: None

PATIENT
  Age: 27 Year
  Sex: Male
  Weight: 96.75 kg

DRUGS (6)
  1. ESCITALOPRAM [Suspect]
     Active Substance: ESCITALOPRAM OXALATE
     Indication: Generalised anxiety disorder
     Dates: start: 20150615, end: 20220728
  2. MAGNESIUM [Concomitant]
     Active Substance: MAGNESIUM
  3. ashwaganda extract [Concomitant]
  4. cordyceps extract [Concomitant]
  5. 3,3^-DIINDOLYLMETHANE [Concomitant]
     Active Substance: 3,3^-DIINDOLYLMETHANE
  6. PIPERINE [Concomitant]
     Active Substance: PIPERINE

REACTIONS (1)
  - Erectile dysfunction [None]

NARRATIVE: CASE EVENT DATE: 20150615
